FAERS Safety Report 8055566 (Version 6)
Quarter: 2013Q4

REPORT INFORMATION
  Report Type: Report from Study
  Country: IT (occurrence: IT)
  Receive Date: 20110726
  Receipt Date: 20131025
  Transmission Date: 20140711
  Serious: Yes (Hospitalization)
  Sender: FDA-Public Use
  Company Number: IT-PFIZER INC-2011159310

PATIENT
  Age: 53 Year
  Sex: Female
  Weight: 80 kg

DRUGS (6)
  1. TORISEL [Suspect]
     Indication: GLIOBLASTOMA
     Dosage: 25 MG, WEEKLY
     Route: 042
     Dates: start: 20110516, end: 20110705
  2. LEVETIRACETAM [Concomitant]
     Indication: PROPHYLAXIS
     Dosage: 500 MG, 2X/DAY
     Route: 048
     Dates: start: 20110408
  3. DEXAMETHASONE [Concomitant]
     Indication: PROPHYLAXIS
     Dosage: 2 MG, 1X/DAY
     Dates: start: 20110523
  4. LANSOPRAZOLE [Concomitant]
     Indication: PROPHYLAXIS
     Dosage: 30 MG, 1X/DAY
     Dates: start: 20110523
  5. STILNOX [Concomitant]
     Indication: INSOMNIA
     Dosage: 10 MG, 1X/DAY
     Dates: start: 20110607
  6. VERTISERC [Concomitant]
     Indication: DIZZINESS
     Dosage: 20 MG, 2X/DAY
     Route: 048
     Dates: start: 20110708, end: 20110711

REACTIONS (3)
  - Osteoarthritis [Recovered/Resolved]
  - Cardiac failure congestive [Recovered/Resolved]
  - Stomatitis [Not Recovered/Not Resolved]
